FAERS Safety Report 23269717 (Version 2)
Quarter: 2023Q4

REPORT INFORMATION
  Report Type: Spontaneous
  Country: JP (occurrence: JP)
  Receive Date: 20231207
  Receipt Date: 20231218
  Transmission Date: 20240110
  Serious: Yes (Hospitalization)
  Sender: FDA-Public Use
  Company Number: JP-NOVOPROD-1146908

PATIENT
  Age: 78 Year
  Sex: Male
  Weight: 68 kg

DRUGS (9)
  1. NOVORAPID [Suspect]
     Active Substance: INSULIN ASPART
     Indication: Type 2 diabetes mellitus
     Dosage: 6 IU, QD(4-0-2-00IU/DAY)
     Route: 058
     Dates: start: 20170509
  2. NOVORAPID [Suspect]
     Active Substance: INSULIN ASPART
     Dosage: 32 IU, QD (17-0-15-0IU/DAY)
     Route: 058
  3. OLMESARTAN MEDOXOMIL [Concomitant]
     Active Substance: OLMESARTAN MEDOXOMIL
     Indication: Product used for unknown indication
     Dosage: 20 MG, QD AFTER BREAKFAST
     Route: 048
     Dates: start: 20200316
  4. NIFEDIPINE [Concomitant]
     Active Substance: NIFEDIPINE
     Indication: Product used for unknown indication
     Dosage: 20 MG, QD, AFTER DINNER
     Route: 048
     Dates: start: 20200316
  5. CILOSTAZOL [Concomitant]
     Active Substance: CILOSTAZOL
     Indication: Product used for unknown indication
     Dosage: 100 MG, QD (2 TIMES, AFTER BREAKFAST AND DINNER)
     Route: 048
     Dates: start: 20170509
  6. LINAGLIPTIN [Concomitant]
     Active Substance: LINAGLIPTIN
     Indication: Product used for unknown indication
     Dosage: 5 MG, QD (AFTER BREAKFAST)
     Route: 048
     Dates: start: 20200608
  7. JARDIANCE [Concomitant]
     Active Substance: EMPAGLIFLOZIN
     Indication: Product used for unknown indication
     Dosage: 25 MG, QD, AFTER BREAKFAST
     Route: 048
     Dates: start: 20200608
  8. METFORMIN HYDROCHLORIDE [Concomitant]
     Active Substance: METFORMIN HYDROCHLORIDE
     Indication: Product used for unknown indication
     Dosage: 250 MG, QD 3 TIMES, AFTER EVERY MEALS
     Route: 048
     Dates: start: 20170509
  9. METFORMIN HYDROCHLORIDE [Concomitant]
     Active Substance: METFORMIN HYDROCHLORIDE
     Dosage: 500 MG, QD 3 TIMES, AFTER EVERY MEALS
     Route: 048

REACTIONS (2)
  - Road traffic accident [Unknown]
  - Hypoglycaemia [Unknown]
